FAERS Safety Report 20525116 (Version 1)
Quarter: 2022Q1

REPORT INFORMATION
  Report Type: Spontaneous
  Country: US (occurrence: None)
  Receive Date: 20220225
  Receipt Date: 20220225
  Transmission Date: 20220424
  Serious: Yes (Hospitalization)
  Sender: FDA-Public Use
  Company Number: None

PATIENT
  Age: 66 Year
  Sex: Female

DRUGS (27)
  1. OPSUMIT [Suspect]
     Active Substance: MACITENTAN
     Indication: Pulmonary arterial hypertension
     Dosage: FREQUENCY : DAILY;?
     Route: 048
     Dates: start: 20190917
  2. SILDENAFIL [Concomitant]
     Active Substance: SILDENAFIL
  3. UPTRAVI [Concomitant]
     Active Substance: SELEXIPAG
  4. POTASSIUM [Concomitant]
     Active Substance: POTASSIUM
  5. METFORMIN [Concomitant]
  6. DILTIAZEM [Concomitant]
     Active Substance: DILTIAZEM
  7. SERTRALINE [Concomitant]
     Active Substance: SERTRALINE HYDROCHLORIDE
  8. VITAMIN B12 [Concomitant]
     Active Substance: CYANOCOBALAMIN
  9. VITAMIN C [Concomitant]
     Active Substance: ASCORBIC ACID
  10. FOLIC ACID [Concomitant]
     Active Substance: FOLIC ACID
  11. ACETAMINOPHEN [Concomitant]
     Active Substance: ACETAMINOPHEN
  12. CLEARLAX [Concomitant]
     Active Substance: POLYETHYLENE GLYCOL 3350
  13. CALCIUM CARBONATE [Concomitant]
     Active Substance: CALCIUM CARBONATE
  14. DOCUSATE SODIUM [Concomitant]
     Active Substance: DOCUSATE SODIUM
  15. BENEFIBER [Concomitant]
     Active Substance: STARCH, WHEAT
  16. ALBUTEROL SULFATE [Concomitant]
     Active Substance: ALBUTEROL SULFATE
  17. LIDOCAINE [Concomitant]
     Active Substance: LIDOCAINE
  18. SENNA LAXATIVE [Concomitant]
     Active Substance: SENNOSIDES
  19. buetanide [Concomitant]
  20. BUMETANIDE [Concomitant]
     Active Substance: BUMETANIDE
  21. ASPIRIN [Concomitant]
     Active Substance: ASPIRIN
  22. LORATADINE [Concomitant]
     Active Substance: LORATADINE
  23. manesium oxide [Concomitant]
  24. WIXELA INHUB [Concomitant]
     Active Substance: FLUTICASONE PROPIONATE\SALMETEROL XINAFOATE
  25. ATORVASTATIN [Concomitant]
     Active Substance: ATORVASTATIN
  26. FERROUS SULFATE [Concomitant]
     Active Substance: FERROUS SULFATE
  27. FLONASE [Concomitant]
     Active Substance: FLUTICASONE PROPIONATE

REACTIONS (2)
  - Acute respiratory failure [None]
  - Pneumonia [None]

NARRATIVE: CASE EVENT DATE: 20220204
